FAERS Safety Report 10143522 (Version 3)
Quarter: 2014Q2

REPORT INFORMATION
  Report Type: Spontaneous
  Country: US (occurrence: US)
  Receive Date: 20140430
  Receipt Date: 20140520
  Transmission Date: 20141212
  Serious: No
  Sender: FDA-Public Use
  Company Number: US-PFIZER INC-2014115009

PATIENT
  Age: 56 Year
  Sex: Female
  Weight: 87.53 kg

DRUGS (12)
  1. LYRICA [Suspect]
     Indication: FIBROMYALGIA
     Dosage: 100 MG, 2X/DAY
     Route: 048
     Dates: start: 20140203
  2. METHOCARBAMOL [Concomitant]
     Indication: NECK PAIN
     Dosage: 750 MG, AS NEEDED (Q8H AS NEEDED)
     Route: 048
     Dates: start: 20140415
  3. METHOCARBAMOL [Concomitant]
     Indication: BACK PAIN
  4. METHOCARBAMOL [Concomitant]
     Indication: FIBROMYALGIA
  5. TRAMADOL HYDROCHLORIDE [Concomitant]
     Indication: PAIN
     Dosage: 50 MG TABS 1/2-1, AS NEEDED
     Route: 048
     Dates: start: 20140304
  6. TRAMADOL HYDROCHLORIDE [Concomitant]
     Indication: FIBROMYALGIA
  7. TIZANIDINE HYDROCHLORIDE [Concomitant]
     Dosage: 4 MG TABS 1/2-1 QHS
     Route: 048
  8. METOPROLOL SUCCINATE [Concomitant]
     Indication: HYPERTENSION
     Dosage: 25 MG 2, QD
     Route: 048
  9. AMBIEN [Concomitant]
     Indication: INSOMNIA
     Dosage: 10 MG, BEDTIME
     Route: 048
     Dates: start: 20140422
  10. CLONAZEPAM [Concomitant]
     Dosage: 0.5 MG, 2X/DAY
     Route: 048
     Dates: start: 20140422
  11. ORTHO-EST [Concomitant]
     Dosage: 2 (0.625, 7.5 MG) DF, 1X/DAY
  12. FLUOXETINE [Concomitant]
     Dosage: 40 MG, UNK

REACTIONS (35)
  - Joint swelling [Unknown]
  - Arthralgia [Not Recovered/Not Resolved]
  - Dysphagia [Unknown]
  - Dyspnoea exertional [Unknown]
  - Depression [Unknown]
  - Irritable bowel syndrome [Unknown]
  - Abdominal pain [Unknown]
  - Neck pain [Unknown]
  - Pain in extremity [Unknown]
  - Musculoskeletal pain [Unknown]
  - Myalgia [Recovering/Resolving]
  - Back pain [Unknown]
  - Cyst [Unknown]
  - Fatigue [Unknown]
  - Asthenia [Unknown]
  - Weight decreased [Unknown]
  - Sleep disorder [Unknown]
  - Weight increased [Unknown]
  - Dry eye [Recovering/Resolving]
  - Nasal congestion [Unknown]
  - Nasal ulcer [Unknown]
  - Cough [Unknown]
  - Wheezing [Unknown]
  - Flatulence [Unknown]
  - Abdominal distension [Unknown]
  - Dyspepsia [Unknown]
  - Joint stiffness [Unknown]
  - Paraesthesia [Unknown]
  - Headache [Unknown]
  - Hypoaesthesia [Unknown]
  - Sputum increased [Unknown]
  - Nodule [Unknown]
  - Pain [Unknown]
  - Hypersensitivity [Unknown]
  - Diarrhoea [Not Recovered/Not Resolved]
